FAERS Safety Report 6895799-9 (Version None)
Quarter: 2010Q3

REPORT INFORMATION
  Report Type: 
  Country: None (occurrence: None)
  Receive Date: 20100730
  Receipt Date: 20100730
  Transmission Date: 20110219
  Serious: No
  Sender: FDA-Public Use
  Company Number: None

PATIENT
  Sex: Male

DRUGS (2)
  1. ACYCLOVIR [Suspect]
     Indication: BLISTER
     Dosage: 1 DOSE PER DAY 1 TABLET EVERY DAY PO
     Route: 048
     Dates: start: 20100523, end: 20100527
  2. ACYCLOVIR [Suspect]
     Indication: VIRAL INFECTION
     Dosage: 1 DOSE PER DAY 1 TABLET EVERY DAY PO
     Route: 048
     Dates: start: 20100523, end: 20100527

REACTIONS (3)
  - BLISTER [None]
  - IMPAIRED HEALING [None]
  - PRODUCT SUBSTITUTION ISSUE [None]
